FAERS Safety Report 10141933 (Version 1)
Quarter: 2014Q2

REPORT INFORMATION
  Report Type: Spontaneous
  Country: US (occurrence: US)
  Receive Date: 20140429
  Receipt Date: 20140429
  Transmission Date: 20141212
  Serious: No
  Sender: FDA-Public Use
  Company Number: US-ASTRAZENECA-2014SE26491

PATIENT
  Age: 61 Year
  Sex: Male
  Weight: 68 kg

DRUGS (5)
  1. PULMICORT FLEXHALER [Suspect]
     Indication: ASTHMA
     Dosage: 180 MCG, 1 INHALATION BID
     Route: 055
     Dates: start: 201402
  2. PULMICORT FLEXHALER [Suspect]
     Indication: CHRONIC OBSTRUCTIVE PULMONARY DISEASE
     Dosage: 180 MCG, 1 INHALATION BID
     Route: 055
     Dates: start: 201402
  3. LISINOPRIL [Suspect]
     Indication: BLOOD PRESSURE
     Dosage: LOWEST DOSE
     Route: 048
  4. APORISO [Concomitant]
     Indication: COLITIS
     Dosage: ASACOL
  5. APORISO [Concomitant]
     Indication: COLITIS
     Dosage: 375

REACTIONS (1)
  - Dyspnoea [Not Recovered/Not Resolved]
